FAERS Safety Report 9908300 (Version 1)
Quarter: 2014Q1

REPORT INFORMATION
  Report Type: Spontaneous
  Country: US (occurrence: None)
  Receive Date: 20140214
  Receipt Date: 20140214
  Transmission Date: 20141002
  Serious: Yes (Hospitalization)
  Sender: FDA-Public Use
  Company Number: None

PATIENT
  Age: 68 None
  Sex: Female
  Weight: 96.5 kg

DRUGS (28)
  1. MORPHINE [Suspect]
     Indication: PAIN
     Dosage: 1-2 MG Q4HRS PRN IV RECENT
     Route: 042
  2. ZOLPIDEM [Suspect]
     Indication: INSOMNIA
     Dosage: 10 MG QHS PO
     Route: 048
  3. NORCO [Suspect]
     Route: 048
  4. ZOLPIDEM [Suspect]
  5. DIAZEPAM [Suspect]
     Dosage: 2 MG PO Q8HR PRN/4 MG PO QHS
     Route: 048
  6. ROBITUSSIN [Concomitant]
  7. NTG [Concomitant]
  8. ZOFRAN [Concomitant]
  9. ALDACTONE [Concomitant]
  10. VALTREX [Concomitant]
  11. COZAAR [Concomitant]
  12. MOM [Concomitant]
  13. MAGOX [Concomitant]
  14. MMW [Concomitant]
  15. DUONEB [Concomitant]
  16. TYLENOL [Concomitant]
  17. ALBUEROL [Concomitant]
  18. LOPRESSOR [Concomitant]
  19. XARELTO [Concomitant]
  20. FLONAS [Concomitant]
  21. LANTUS [Concomitant]
  22. SENNE [Concomitant]
  23. NOVOLOG [Concomitant]
  24. PREDNISONE [Concomitant]
  25. MIRALAZ [Concomitant]
  26. OMEPRAZOLE [Concomitant]
  27. FINASTERIDE [Concomitant]
  28. TUDORZA [Suspect]

REACTIONS (6)
  - Dyspnoea [None]
  - Unresponsive to stimuli [None]
  - Encephalopathy [None]
  - Sedation [None]
  - Hypercapnia [None]
  - Cardio-respiratory arrest [None]
